FAERS Safety Report 5736410-X (Version None)
Quarter: 2008Q2

REPORT INFORMATION
  Report Type: 
  Country: None (occurrence: None)
  Receive Date: 20080513
  Receipt Date: 20080506
  Transmission Date: 20081010
  Serious: Yes (Other)
  Sender: FDA-Public Use
  Company Number: A0727729A

PATIENT

DRUGS (2)
  1. FLONASE [Suspect]
     Indication: MULTIPLE ALLERGIES
     Route: 045
  2. UNKNOWN [Concomitant]

REACTIONS (4)
  - CATARACT [None]
  - EYE PAIN [None]
  - GLAUCOMA [None]
  - RETINAL DETACHMENT [None]
